FAERS Safety Report 9529478 (Version 3)
Quarter: 2013Q4

REPORT INFORMATION
  Report Type: Spontaneous
  Country: US (occurrence: US)
  Receive Date: 20130917
  Receipt Date: 20131227
  Transmission Date: 20140711
  Serious: Yes (Hospitalization, Other)
  Sender: FDA-Public Use
  Company Number: US-BAYER-2013-109836

PATIENT
  Age: 28 Year
  Sex: Female
  Weight: 63.49 kg

DRUGS (15)
  1. MIRENA [Suspect]
     Indication: CONTRACEPTION
     Dosage: 20 MCG/24HR, CONT
     Route: 015
     Dates: start: 20101119, end: 20110902
  2. MIRENA [Suspect]
     Indication: MENORRHAGIA
     Dosage: 20 MCG/24HR, CONT
     Route: 015
     Dates: start: 20110506, end: 20120918
  3. NAPROXEN SODIUM [Concomitant]
     Indication: ARTHRALGIA
  4. ALBUTEROL [Concomitant]
     Indication: ASTHMA
     Dosage: UNK
     Dates: start: 1998
  5. BUPROPION [Concomitant]
     Indication: DEPRESSION
     Dosage: UNK
     Dates: start: 200307
  6. VITAMIN D [Concomitant]
     Indication: VITAMIN SUPPLEMENTATION
     Dosage: UNK
     Dates: start: 200905
  7. FAMOTIDINE [Concomitant]
     Indication: GASTROOESOPHAGEAL REFLUX DISEASE
     Dosage: UNK
     Dates: start: 201009
  8. NIFEDIPINE [Concomitant]
  9. OXYCODONE [Concomitant]
  10. PRENATAL VITAMINS [VIT C,B5,B12,D2,B3,B6,RETINOL PALMIT,B2,B1 MONO [Concomitant]
  11. FOLIC ACID [Concomitant]
     Indication: VITAMIN SUPPLEMENTATION
     Dosage: UNK
     Dates: start: 20020901
  12. IRON COMPLEX [Concomitant]
     Indication: ANAEMIA
     Dosage: UNK
     Dates: start: 1998
  13. MIDODRINE [Concomitant]
     Indication: HYPERTENSION
     Dosage: UNK
     Dates: start: 200608
  14. KEPPRA [Concomitant]
     Indication: CONVULSION
     Dosage: UNK
     Dates: start: 2006
  15. TOPIRAMATE [Concomitant]
     Indication: CONVULSION
     Dosage: UNK
     Dates: start: 2006

REACTIONS (16)
  - Uterine perforation [None]
  - Genital haemorrhage [None]
  - Device dislocation [None]
  - Abdominal pain [None]
  - Pelvic pain [None]
  - Injury [None]
  - Device misuse [None]
  - Medical device complication [None]
  - Emotional distress [None]
  - Discomfort [None]
  - Post-traumatic stress disorder [None]
  - Depression [None]
  - Internal injury [None]
  - Anxiety [None]
  - Fear [None]
  - Menorrhagia [None]
